FAERS Safety Report 22023272 (Version 2)
Quarter: 2023Q1

REPORT INFORMATION
  Report Type: Report from Study
  Country: US (occurrence: US)
  Receive Date: 20230223
  Receipt Date: 20230308
  Transmission Date: 20230418
  Serious: Yes (Death, Hospitalization)
  Sender: FDA-Public Use
  Company Number: US-ABBVIE-4316010

PATIENT
  Age: 59 Year
  Sex: Female

DRUGS (6)
  1. IMBRUVICA [Suspect]
     Active Substance: IBRUTINIB
     Indication: Product used for unknown indication
     Route: 048
  2. VENCLEXTA [Suspect]
     Active Substance: VENETOCLAX
     Indication: Mantle cell lymphoma
     Dosage: FORM STRENGTH: 50 MG
     Route: 048
  3. VENCLEXTA [Suspect]
     Active Substance: VENETOCLAX
     Indication: Mantle cell lymphoma
     Dosage: FORM STRENGTH: 20 MG
     Route: 048
     Dates: start: 20230110
  4. VENCLEXTA [Suspect]
     Active Substance: VENETOCLAX
     Indication: Mantle cell lymphoma
     Dosage: FORM STRENGTH: 100 MG
     Route: 048
  5. VENCLEXTA [Suspect]
     Active Substance: VENETOCLAX
     Indication: Mantle cell lymphoma
     Dosage: FORM STRENGTH: 200 MG
     Route: 048
  6. RITUXAN [Concomitant]
     Active Substance: RITUXIMAB
     Indication: Mantle cell lymphoma
     Dates: start: 20230110

REACTIONS (3)
  - Death [Fatal]
  - Off label use [Unknown]
  - Hospice care [Unknown]

NARRATIVE: CASE EVENT DATE: 20230216
